FAERS Safety Report 15307279 (Version 1)
Quarter: 2018Q3

REPORT INFORMATION
  Report Type: Spontaneous
  Country: US (occurrence: US)
  Receive Date: 20180822
  Receipt Date: 20180822
  Transmission Date: 20181010
  Serious: Yes (Other)
  Sender: FDA-Public Use
  Company Number: US-BAYER-2018-157933

PATIENT
  Age: 56 Year
  Sex: Male

DRUGS (9)
  1. LENVATINIB [Suspect]
     Active Substance: LENVATINIB
     Indication: THYROID CANCER
     Dosage: 24 MG, QD
     Route: 048
     Dates: start: 20170215, end: 201703
  2. LENVATINIB [Suspect]
     Active Substance: LENVATINIB
     Indication: THYROID CANCER
     Dosage: 8 MG, QD
     Route: 048
  3. LENVATINIB [Suspect]
     Active Substance: LENVATINIB
     Indication: THYROID CANCER
     Dosage: 14 MG, QD
     Route: 048
     Dates: start: 20170303, end: 20170726
  4. LENVATINIB [Suspect]
     Active Substance: LENVATINIB
     Indication: THYROID CANCER
     Dosage: 4 MG, 5IW
     Route: 048
     Dates: start: 2017, end: 2017
  5. LENVATINIB [Suspect]
     Active Substance: LENVATINIB
     Indication: THYROID CANCER
     Dosage: 4 MG, TIW
     Route: 048
     Dates: start: 201707, end: 2017
  6. ALEVE [Suspect]
     Active Substance: NAPROXEN SODIUM
     Indication: BACK PAIN
     Dosage: UNK
     Route: 048
  7. LENVATINIB [Suspect]
     Active Substance: LENVATINIB
     Indication: THYROID CANCER
     Dosage: 20 MG, QD
     Route: 048
     Dates: start: 20170307, end: 201703
  8. LENVATINIB [Suspect]
     Active Substance: LENVATINIB
     Indication: THYROID CANCER
     Dosage: 8 MG, 5IW
     Route: 048
     Dates: start: 2017
  9. HYDROCODONE [Concomitant]
     Active Substance: HYDROCODONE

REACTIONS (13)
  - Rash [None]
  - Dysphonia [None]
  - Hypotension [None]
  - Dizziness [Unknown]
  - Seasonal allergy [None]
  - Blood pressure increased [Unknown]
  - Malaise [None]
  - Vomiting [None]
  - Fatigue [Unknown]
  - Decreased appetite [Unknown]
  - Gastric ulcer haemorrhage [Unknown]
  - Oral pain [None]
  - Feeding disorder [None]

NARRATIVE: CASE EVENT DATE: 2016
